FAERS Safety Report 7589768-3 (Version None)
Quarter: 2011Q3

REPORT INFORMATION
  Report Type: 
  Country: None (occurrence: None)
  Receive Date: 20110705
  Receipt Date: 20110623
  Transmission Date: 20111222
  Serious: Yes (Death)
  Sender: FDA-Public Use
  Company Number: DE-ALEXION-A201100868

PATIENT
  Sex: Female

DRUGS (5)
  1. KEPRA [Concomitant]
     Indication: CONVULSION
     Dosage: 500 MG UNK
     Route: 042
     Dates: start: 20110531, end: 20110602
  2. LORAZEPAM [Concomitant]
     Indication: CONVULSION
     Dosage: 1 MG UNK
     Route: 048
     Dates: start: 20110531, end: 20110602
  3. CLONAZEPAM [Concomitant]
     Indication: CONVULSION
     Dosage: 1 MG UNK
     Route: 042
     Dates: start: 20110531, end: 20110602
  4. SOLIRIS [Suspect]
     Indication: HAEMOLYTIC URAEMIC SYNDROME
     Dosage: 900 MG UNK
     Route: 042
     Dates: start: 20110531, end: 20110531
  5. PHENHYDAN [Concomitant]
     Indication: CONVULSION
     Dosage: 250 MG UNK
     Route: 042
     Dates: start: 20110531, end: 20110602

REACTIONS (4)
  - CORONARY ARTERY DISEASE [None]
  - CONDITION AGGRAVATED [None]
  - SEPSIS [None]
  - RENAL FAILURE [None]
